FAERS Safety Report 5611494-8 (Version None)
Quarter: 2008Q1

REPORT INFORMATION
  Report Type: 
  Country: None (occurrence: None)
  Receive Date: 20080201
  Receipt Date: 20080122
  Transmission Date: 20080703
  Serious: Yes (Other)
  Sender: FDA-Public Use
  Company Number: US-PFIZER INC-2008008343

PATIENT
  Sex: Male
  Weight: 109.8 kg

DRUGS (3)
  1. CHANTIX [Suspect]
     Indication: SMOKING CESSATION THERAPY
  2. LITHIUM CARBONATE [Concomitant]
     Indication: BIPOLAR DISORDER
  3. BENZODIAZEPINE DERIVATIVES [Concomitant]
     Indication: BIPOLAR DISORDER

REACTIONS (4)
  - ABNORMAL DREAMS [None]
  - HAEMATEMESIS [None]
  - NAUSEA [None]
  - SLEEP DISORDER [None]
